FAERS Safety Report 6148955-1 (Version None)
Quarter: 2009Q2

REPORT INFORMATION
  Report Type: 
  Country: None (occurrence: None)
  Receive Date: 20090408
  Receipt Date: 20081013
  Transmission Date: 20091009
  Serious: Yes (Death)
  Sender: FDA-Public Use
  Company Number: DE-GILEAD-2008-0018624

PATIENT
  Age: 81 Year
  Sex: Female

DRUGS (2)
  1. VIREAD [Suspect]
     Indication: HEPATITIS
  2. LAMIVUDINE [Concomitant]

REACTIONS (1)
  - HEPATIC FAILURE [None]
